FAERS Safety Report 25632343 (Version 1)
Quarter: 2025Q3

REPORT INFORMATION
  Report Type: Spontaneous
  Country: US (occurrence: US)
  Receive Date: 20250801
  Receipt Date: 20250801
  Transmission Date: 20251021
  Serious: No
  Sender: Tarsus Pharmaceuticals
  Company Number: US-TARSUS PHARMACEUTICALS-TSP-US-2025-000609

PATIENT

DRUGS (3)
  1. XDEMVY [Suspect]
     Active Substance: LOTILANER
     Indication: Ocular demodicosis
     Dosage: 1 DROP, BID (1 DROP IN EACH EYE TWICE DAILY FOR 42 DAYS)
     Route: 047
     Dates: start: 20250425, end: 20250606
  2. DORZOLAMIDE HYDROCHLORIDE [Concomitant]
     Active Substance: DORZOLAMIDE HYDROCHLORIDE
     Indication: Glaucoma
     Dosage: 1 DROP, BID (IN LEFT EYE)
     Route: 047
  3. LANOLIN\PARAFFIN [Concomitant]
     Active Substance: LANOLIN\PARAFFIN
     Indication: Dry eye
     Dosage: UNK, QD (5 TO 6 TIMES PER DAY)
     Route: 047

REACTIONS (1)
  - Drug ineffective [Unknown]
